FAERS Safety Report 8756280 (Version 3)
Quarter: 2012Q4

REPORT INFORMATION
  Report Type: Spontaneous
  Country: US (occurrence: None)
  Receive Date: 20120814
  Receipt Date: 20121009
  Transmission Date: 20130627
  Serious: Yes (Death, Hospitalization)
  Sender: FDA-Public Use
  Company Number: DSA_58854_2012

PATIENT
  Age: 62 Year
  Sex: Female
  Weight: 43.55 kg

DRUGS (1)
  1. XENAZINE [Suspect]
     Indication: TREMOR
     Route: 048
     Dates: start: 201201, end: 2012

REACTIONS (1)
  - Death [None]
